FAERS Safety Report 8383399-3 (Version None)
Quarter: 2012Q2

REPORT INFORMATION
  Report Type: 
  Country: None (occurrence: None)
  Receive Date: 20120524
  Receipt Date: 20120521
  Transmission Date: 20120825
  Serious: Yes (Hospitalization, Other)
  Sender: FDA-Public Use
  Company Number: US-BAYER-2011-042025

PATIENT
  Age: 17 Year
  Sex: Female
  Weight: 65 kg

DRUGS (5)
  1. YASMIN [Suspect]
     Indication: ACNE
  2. YASMIN [Suspect]
     Indication: PREMENSTRUAL SYNDROME
  3. IBUPROFEN [Concomitant]
     Dosage: UNK UNK, PRN
     Dates: start: 20100214
  4. FE PILL [Concomitant]
     Dosage: OCC
     Dates: start: 20100214
  5. YASMIN [Suspect]
     Indication: CONTRACEPTION
     Dosage: UNK
     Dates: start: 20091101, end: 20100201

REACTIONS (14)
  - DEEP VEIN THROMBOSIS [None]
  - CEREBRAL THROMBOSIS [None]
  - FEAR OF DEATH [None]
  - CEREBRAL HAEMORRHAGE [None]
  - THROMBOSIS [None]
  - CEREBROVASCULAR ACCIDENT [None]
  - EYE SWELLING [None]
  - EMOTIONAL DISTRESS [None]
  - NERVOUSNESS [None]
  - MIGRAINE [None]
  - AMNESIA [None]
  - PAIN [None]
  - DEPRESSION [None]
  - BALANCE DISORDER [None]
